FAERS Safety Report 8419778-5 (Version None)
Quarter: 2012Q2

REPORT INFORMATION
  Report Type: 
  Country: None (occurrence: None)
  Receive Date: 20120607
  Receipt Date: 20120530
  Transmission Date: 20120825
  Serious: Yes (Hospitalization, Other)
  Sender: FDA-Public Use
  Company Number: US-ABBOTT-12P-163-0927650-00

PATIENT
  Age: 59 Year
  Sex: Female

DRUGS (16)
  1. DILTIAZEM [Concomitant]
     Dates: start: 20120524
  2. PREDNISONE TAB [Suspect]
     Indication: PNEUMONIA
     Dates: start: 20120401
  3. DEPAKOTE [Concomitant]
     Indication: BIPOLAR DISORDER
     Route: 048
  4. PRAVASTATIN [Concomitant]
     Indication: BLOOD CHOLESTEROL INCREASED
     Dosage: 40 MG DAILY
     Route: 048
     Dates: start: 20120401
  5. HUMIRA [Suspect]
     Indication: PSORIASIS
     Dates: start: 20110510, end: 20120403
  6. SIMVASTATIN [Concomitant]
     Indication: BLOOD CHOLESTEROL INCREASED
     Dates: end: 20120401
  7. SEROQUEL [Concomitant]
     Indication: BIPOLAR DISORDER
     Dosage: 600 MG DAILY
     Route: 048
  8. HUMIRA [Suspect]
     Dates: start: 20120528, end: 20120528
  9. ACYCLOVIR [Concomitant]
     Indication: HERPES VIRUS INFECTION
     Route: 048
  10. LISINOPRIL [Concomitant]
     Indication: PRODUCT USED FOR UNKNOWN INDICATION
     Dates: end: 20120401
  11. RESTORIL [Concomitant]
     Indication: INSOMNIA
     Dosage: 2-3 TABS DAILY
     Route: 048
  12. METHOTREXATE [Concomitant]
     Indication: PRODUCT USED FOR UNKNOWN INDICATION
  13. GEODON [Concomitant]
     Indication: BIPOLAR DISORDER
     Dosage: 80 MG DAILY
     Route: 048
  14. SEROQUEL [Concomitant]
  15. DILTIAZEM [Concomitant]
     Indication: HEART RATE INCREASED
     Route: 048
  16. REMICADE [Concomitant]
     Indication: PRODUCT USED FOR UNKNOWN INDICATION

REACTIONS (17)
  - ANTIBODY TEST ABNORMAL [None]
  - RESPIRATORY TRACT CONGESTION [None]
  - SLEEP APNOEA SYNDROME [None]
  - PERICARDIAL EFFUSION [None]
  - BLOOD TRIGLYCERIDES INCREASED [None]
  - SYSTEMIC LUPUS ERYTHEMATOSUS [None]
  - BASAL CELL CARCINOMA [None]
  - BLOOD GLUCOSE INCREASED [None]
  - CHRONIC OBSTRUCTIVE PULMONARY DISEASE [None]
  - PYREXIA [None]
  - DRUG EFFECT DECREASED [None]
  - PLEURAL EFFUSION [None]
  - PNEUMONIA [None]
  - SOMNOLENCE [None]
  - PSORIASIS [None]
  - CHILLS [None]
  - PULMONARY OEDEMA [None]
